FAERS Safety Report 7547136 (Version 7)
Quarter: 2015Q2

REPORT INFORMATION
  Report Type: Spontaneous
  Country: US (occurrence: US)
  Receive Date: 20100819
  Receipt Date: 20150605
  Transmission Date: 20150821
  Serious: Yes (Life-Threatening, Hospitalization, Other)
  Sender: FDA-Public Use
  Company Number: US-BAYER-201021045NA

PATIENT
  Age: 25 Year
  Sex: Female
  Weight: 83.45 kg

DRUGS (7)
  1. TRAMADOL [Concomitant]
     Active Substance: TRAMADOL
  2. PHENTERMINE [Concomitant]
     Active Substance: PHENTERMINE
  3. VICODIN [Concomitant]
     Active Substance: ACETAMINOPHEN\HYDROCODONE BITARTRATE
  4. ADIPEX-P [Concomitant]
     Active Substance: PHENTERMINE HYDROCHLORIDE
  5. MIRENA [Suspect]
     Active Substance: LEVONORGESTREL
     Indication: CONTRACEPTION
     Dosage: 20 MCG/24HR, CONT
     Route: 015
     Dates: start: 20100115, end: 20111207
  6. IBUPROFEN. [Concomitant]
     Active Substance: IBUPROFEN
  7. HYDROCHLOROTHIAZIDE. [Concomitant]
     Active Substance: HYDROCHLOROTHIAZIDE

REACTIONS (34)
  - Uterine perforation [None]
  - Mood swings [None]
  - Post procedural haemorrhage [None]
  - Renal pain [None]
  - Dizziness [None]
  - Feeling of body temperature change [None]
  - Anxiety [None]
  - Anhedonia [None]
  - Abdominal pain [None]
  - Abdominal pain lower [None]
  - Depression [None]
  - Deformity [None]
  - Device dislocation [None]
  - Malaise [None]
  - Emotional distress [None]
  - Tremor [None]
  - Headache [None]
  - Abdominal pain [None]
  - Abdominal discomfort [None]
  - Dizziness [None]
  - Diarrhoea [None]
  - Anger [None]
  - Hostility [None]
  - Procedural pain [None]
  - General physical health deterioration [None]
  - Scar [None]
  - Abortion spontaneous [None]
  - Injury [None]
  - Pregnancy with contraceptive device [Recovered/Resolved]
  - Bipolar disorder [None]
  - Pelvic inflammatory disease [None]
  - Drug ineffective [None]
  - Vomiting in pregnancy [Recovered/Resolved]
  - Nausea [Recovered/Resolved]

NARRATIVE: CASE EVENT DATE: 201003
